FAERS Safety Report 21770586 (Version 1)
Quarter: 2022Q4

REPORT INFORMATION
  Report Type: Report from Study
  Country: US (occurrence: US)
  Receive Date: 20221223
  Receipt Date: 20221223
  Transmission Date: 20230113
  Serious: No
  Sender: FDA-Public Use
  Company Number: US-Ipsen Biopharmaceuticals, Inc.-2022-34530

PATIENT
  Age: 69 Year
  Sex: Male

DRUGS (1)
  1. LANREOTIDE ACETATE [Suspect]
     Active Substance: LANREOTIDE ACETATE
     Indication: Cancer surgery
     Dosage: 120 MG, 28 DAYS
     Dates: start: 20220828

REACTIONS (7)
  - Head discomfort [Recovering/Resolving]
  - Blood pressure increased [Recovering/Resolving]
  - Anxiety [Recovering/Resolving]
  - Dyspnoea [Recovering/Resolving]
  - Disturbance in attention [Recovering/Resolving]
  - Sinus congestion [Recovering/Resolving]
  - Insomnia [Recovering/Resolving]
